FAERS Safety Report 17483314 (Version 1)
Quarter: 2020Q1

REPORT INFORMATION
  Report Type: Spontaneous
  Country: US (occurrence: US)
  Receive Date: 20200229
  Receipt Date: 20200229
  Transmission Date: 20200409
  Serious: No
  Sender: FDA-Public Use
  Company Number: None

PATIENT
  Age: 28 Year
  Sex: Female
  Weight: 58.05 kg

DRUGS (2)
  1. ETONOGESTREL/ETHINYL ESTRADIOL [Suspect]
     Active Substance: ETHINYL ESTRADIOL\ETONOGESTREL
     Indication: CONTRACEPTION
     Dosage: ?          QUANTITY:1 1 RING;OTHER FREQUENCY:ONCE EVERY 4 WEEKS;?
     Route: 067
     Dates: start: 20200119, end: 20200229
  2. PRASCO RING [Concomitant]

REACTIONS (6)
  - Product substitution issue [None]
  - Headache [None]
  - Disease recurrence [None]
  - General symptom [None]
  - Dizziness postural [None]
  - Depression [None]

NARRATIVE: CASE EVENT DATE: 20200119
